FAERS Safety Report 11109958 (Version 1)
Quarter: 2015Q2

REPORT INFORMATION
  Report Type: Spontaneous
  Country: US (occurrence: None)
  Receive Date: 20150512
  Receipt Date: 20150512
  Transmission Date: 20150821
  Serious: No
  Sender: FDA-Public Use
  Company Number: None

PATIENT
  Age: 84 Year
  Sex: Male
  Weight: 81.65 kg

DRUGS (13)
  1. LEVOFLOXACIN. [Suspect]
     Active Substance: LEVOFLOXACIN
     Dates: start: 20140714, end: 20140728
  2. COD LIVER OIL [Concomitant]
     Active Substance: COD LIVER OIL
  3. BIO E WITH SELENIUM [Concomitant]
  4. CIPROFLOXACIN. [Suspect]
     Active Substance: CIPROFLOXACIN
     Indication: URINARY TRACT INFECTION
     Route: 048
     Dates: start: 20140623, end: 20140708
  5. SULFAMETHOXAZOLE-TRIMETHOPRIM (SMZ) [Suspect]
     Active Substance: SULFAMETHOXAZOLE\TRIMETHOPRIM
  6. FINASTERIDE. [Concomitant]
     Active Substance: FINASTERIDE
  7. TAMSULOSIN [Concomitant]
     Active Substance: TAMSULOSIN
  8. VITAMIN C [Concomitant]
     Active Substance: ASCORBIC ACID
  9. LISINOPRIL/HCTZ 20-12.5 [Concomitant]
     Active Substance: HYDROCHLOROTHIAZIDE\LISINOPRIL
  10. VITAMIN B COMPLEX [Concomitant]
     Active Substance: CYANOCOBALAMIN\DEXPANTHENOL\NIACINAMIDE\PYRIDOXINE HYDROCHLORIDE\RIBOFLAVIN 5^-PHOSPHATE SODIUM\THIAMINE HYDROCHLORIDE\VITAMIN B COMPLEX
  11. VITAMIN A AND D [Concomitant]
     Active Substance: LANOLIN\PETROLATUM
  12. LEVOFLOXACIN. [Suspect]
     Active Substance: LEVOFLOXACIN
  13. DIAZEPAM. [Concomitant]
     Active Substance: DIAZEPAM

REACTIONS (6)
  - Nausea [None]
  - Macular fibrosis [None]
  - Muscle tightness [None]
  - No therapeutic response [None]
  - Peroneal nerve palsy [None]
  - Ear disorder [None]

NARRATIVE: CASE EVENT DATE: 20140622
